FAERS Safety Report 10289627 (Version 5)
Quarter: 2014Q4

REPORT INFORMATION
  Report Type: Spontaneous
  Country: US (occurrence: None)
  Receive Date: 20140707
  Receipt Date: 20141112
  Transmission Date: 20150528
  Serious: Yes (Hospitalization)
  Sender: FDA-Public Use
  Company Number: UNT-2014-003240

PATIENT
  Age: 75 Year
  Sex: Female
  Weight: 79.4 kg

DRUGS (8)
  1. LETAIRIS [Concomitant]
     Active Substance: AMBRISENTAN
  2. BYSTOLIC [Concomitant]
     Active Substance: NEBIVOLOL HYDROCHLORIDE
  3. AMLODIPINE BENAZEPRIL (AMLODIPINE BESILATE, BENAZEPRIL HYDROCHLORIDE) [Concomitant]
  4. FLECTOR /00372307/ (DICLOFENAC EPOLAMINE) [Concomitant]
  5. TYVASO [Suspect]
     Active Substance: TREPROSTINIL
     Indication: PULMONARY ARTERIAL HYPERTENSION
     Route: 055
     Dates: start: 20140303
  6. SILDENAFIL. [Concomitant]
     Active Substance: SILDENAFIL
  7. LASIX [Concomitant]
     Active Substance: FUROSEMIDE
  8. COUMADIN /00014802/ (WARFARIN SODIUM) [Concomitant]

REACTIONS (9)
  - Ear congestion [None]
  - Back injury [None]
  - Back pain [None]
  - Blood pressure decreased [None]
  - Loss of consciousness [None]
  - Road traffic accident [None]
  - Dysphonia [None]
  - Lacrimation increased [None]
  - Rhinorrhoea [None]

NARRATIVE: CASE EVENT DATE: 20140609
